FAERS Safety Report 4474542-7 (Version None)
Quarter: 2004Q3

REPORT INFORMATION
  Report Type: 
  Country: None (occurrence: None)
  Receive Date: 20040923
  Receipt Date: 20040803
  Transmission Date: 20050211
  Serious: Yes (Hospitalization, Other)
  Sender: FDA-Public Use
  Company Number: USA030948315

PATIENT
  Age: 65 Year
  Sex: Female
  Weight: 69 kg

DRUGS (9)
  1. FORTEO [Suspect]
     Indication: OSTEOPOROSIS
     Dosage: 20 UG DAY
     Dates: start: 20030924
  2. PROPOXYPHENE HCL [Concomitant]
  3. VICODIN [Concomitant]
  4. ATIVAN [Concomitant]
  5. COUMADIN [Concomitant]
  6. ZOCOR [Concomitant]
  7. TOPROL-XL [Concomitant]
  8. CALCIUM [Concomitant]
  9. MAGNESIUM (MAGNESIUM ASPARTATE) [Concomitant]

REACTIONS (8)
  - BLOOD MAGNESIUM ABNORMAL [None]
  - BLOOD POTASSIUM ABNORMAL [None]
  - DIZZINESS [None]
  - HEADACHE [None]
  - INJECTION SITE URTICARIA [None]
  - INTERNATIONAL NORMALISED RATIO ABNORMAL [None]
  - MULTIPLE FRACTURES [None]
  - VERTIGO [None]
